FAERS Safety Report 5616255-1 (Version None)
Quarter: 2008Q1

REPORT INFORMATION
  Report Type: 
  Country: None (occurrence: None)
  Receive Date: 20080204
  Receipt Date: 20080124
  Transmission Date: 20080703
  Serious: Yes (Hospitalization, Other)
  Sender: FDA-Public Use
  Company Number: SPV1-2008-00144

PATIENT
  Age: 20 Year
  Sex: Female
  Weight: 61.2 kg

DRUGS (3)
  1. ADDERALL XR 10 [Suspect]
     Indication: ATTENTION DEFICIT/HYPERACTIVITY DISORDER
     Dosage: 20 MG TABLET DAILY PRN, ORAL
     Route: 048
     Dates: start: 20020901, end: 20080103
  2. ADDERALL 10 [Suspect]
     Indication: ATTENTION DEFICIT/HYPERACTIVITY DISORDER
     Dosage: 20 MG TABLETS DAILY PRN, ORAL
     Route: 048
     Dates: start: 20020901, end: 20080103
  3. ZYRTEC [Concomitant]

REACTIONS (15)
  - ABDOMINAL DISCOMFORT [None]
  - CHILLS [None]
  - DIARRHOEA [None]
  - DIZZINESS [None]
  - ENTEROCOLITIS [None]
  - FLUSHING [None]
  - HEART RATE INCREASED [None]
  - HYPOTENSION [None]
  - IMPAIRED GASTRIC EMPTYING [None]
  - MALAISE [None]
  - NAUSEA [None]
  - PERIPHERAL COLDNESS [None]
  - PRESYNCOPE [None]
  - SINUS ARRHYTHMIA [None]
  - SYNCOPE VASOVAGAL [None]
